FAERS Safety Report 23587234 (Version 1)
Quarter: 2024Q1

REPORT INFORMATION
  Report Type: Spontaneous
  Country: FR (occurrence: FR)
  Receive Date: 20240301
  Receipt Date: 20240301
  Transmission Date: 20240409
  Serious: Yes (Hospitalization)
  Sender: FDA-Public Use
  Company Number: None

PATIENT
  Age: 24 Year
  Sex: Male
  Weight: 62 kg

DRUGS (5)
  1. OXYCODONE HYDROCHLORIDE [Suspect]
     Active Substance: OXYCODONE HYDROCHLORIDE
     Indication: Procedural pain
     Dosage: 10 MILLIGRAM, EVERY 2 DAYS
     Route: 048
     Dates: start: 20240206, end: 20240206
  2. OXYCODONE HYDROCHLORIDE [Suspect]
     Active Substance: OXYCODONE HYDROCHLORIDE
     Indication: Procedural pain
     Dosage: 5 MILLIGRAM, Q6H
     Route: 048
     Dates: start: 20240205, end: 20240206
  3. MORPHINE [Suspect]
     Active Substance: MORPHINE
     Indication: Procedural pain
     Dosage: 10 MILLIGRAM, TOTAL (10 MG MORNING)
     Route: 058
     Dates: start: 20240206, end: 20240206
  4. MORPHINE [Suspect]
     Active Substance: MORPHINE
     Dosage: 3 MILLIGRAM, EVERY 5 MIN
     Route: 042
     Dates: start: 20240206, end: 20240206
  5. NEFOPAM HYDROCHLORIDE [Concomitant]
     Active Substance: NEFOPAM HYDROCHLORIDE
     Indication: Procedural pain
     Dosage: 1 DOSAGE FORM, Q6H
     Route: 042
     Dates: start: 20240205, end: 20240206

REACTIONS (3)
  - Loss of consciousness [Recovering/Resolving]
  - Urinary retention [Recovering/Resolving]
  - Accidental overdose [Recovered/Resolved]

NARRATIVE: CASE EVENT DATE: 20240206
